FAERS Safety Report 17863469 (Version 1)
Quarter: 2020Q2

REPORT INFORMATION
  Report Type: Spontaneous
  Country: US (occurrence: US)
  Receive Date: 20200605
  Receipt Date: 20200605
  Transmission Date: 20200714
  Serious: Yes (Hospitalization)
  Sender: FDA-Public Use
  Company Number: US-US WORLDMEDS, LLC-USW201905-000946

PATIENT
  Age: 63 Year
  Sex: Female
  Weight: 50.8 kg

DRUGS (21)
  1. GOCOVRI [Suspect]
     Active Substance: AMANTADINE
     Indication: DYSKINESIA
     Route: 048
     Dates: start: 20181029, end: 20181104
  2. GOCOVRI [Suspect]
     Active Substance: AMANTADINE
     Route: 048
     Dates: start: 20180511, end: 20190329
  3. LORAZEPAM. [Concomitant]
     Active Substance: LORAZEPAM
  4. FAMOTIDINE. [Concomitant]
     Active Substance: FAMOTIDINE
  5. APOKYN [Suspect]
     Active Substance: APOMORPHINE HYDROCHLORIDE
     Indication: PARKINSON^S DISEASE
     Route: 058
     Dates: start: 201902, end: 20190326
  6. MAGNESIUM OXIDE. [Concomitant]
     Active Substance: MAGNESIUM OXIDE
  7. OMEGA 3 [Concomitant]
     Active Substance: OMEGA-3 FATTY ACIDS
     Indication: NUTRITIONAL SUPPLEMENTATION
  8. COMTAN [Concomitant]
     Active Substance: ENTACAPONE
  9. TIGAN [Concomitant]
     Active Substance: TRIMETHOBENZAMIDE HYDROCHLORIDE
  10. BENADRYL [Concomitant]
     Active Substance: DIPHENHYDRAMINE HYDROCHLORIDE
  11. LORAZEPAM. [Concomitant]
     Active Substance: LORAZEPAM
  12. DOXEPIN [Concomitant]
     Active Substance: DOXEPIN
  13. SINEMET [Concomitant]
     Active Substance: CARBIDOPA\LEVODOPA
  14. HYDROCODONE BITARTRATE AND ACETAMINOPHEN [Concomitant]
     Active Substance: ACETAMINOPHEN\HYDROCODONE BITARTRATE
  15. METOPROLOL TARTRATE. [Concomitant]
     Active Substance: METOPROLOL TARTRATE
  16. SINEMET [Concomitant]
     Active Substance: CARBIDOPA\LEVODOPA
     Dosage: .5 TABLET IN THE MORNING, NOON, AND 4:00 PM, AND ONLY 1 TABLET AT NIGHT
  17. CARBIDOPA/LEVODOPA [Concomitant]
     Active Substance: CARBIDOPA\LEVODOPA
     Indication: PARKINSON^S DISEASE
  18. VITAMIN C [Concomitant]
     Active Substance: ASCORBIC ACID
  19. TIZANIDINE. [Concomitant]
     Active Substance: TIZANIDINE
  20. LIDOCAINE. [Concomitant]
     Active Substance: LIDOCAINE
     Route: 061
  21. ENTACAPONE. [Concomitant]
     Active Substance: ENTACAPONE

REACTIONS (8)
  - Malaise [Unknown]
  - Gait disturbance [Not Recovered/Not Resolved]
  - On and off phenomenon [Not Recovered/Not Resolved]
  - Dyskinesia [Not Recovered/Not Resolved]
  - Fall [Unknown]
  - Acute kidney injury [Unknown]
  - Self-medication [Unknown]
  - Rhabdomyolysis [Recovered/Resolved]

NARRATIVE: CASE EVENT DATE: 201903
